FAERS Safety Report 6074371-7 (Version None)
Quarter: 2009Q1

REPORT INFORMATION
  Report Type: 
  Country: None (occurrence: None)
  Receive Date: 20090211
  Receipt Date: 20090130
  Transmission Date: 20090719
  Serious: Yes (Other)
  Sender: FDA-Public Use
  Company Number: JP-PFIZER INC-2009164393

PATIENT

DRUGS (8)
  1. CHAMPIX [Suspect]
     Indication: SMOKING CESSATION THERAPY
     Route: 048
     Dates: start: 20080715, end: 20080923
  2. MEVALOTIN [Concomitant]
     Dosage: UNK
     Route: 048
  3. ASPIRIN [Concomitant]
     Dosage: UNK
     Route: 048
  4. LASIX [Concomitant]
     Dosage: UNK
     Route: 048
  5. MICARDIS [Concomitant]
     Dosage: UNK
     Route: 048
  6. ALMARL [Concomitant]
     Dosage: UNK
     Route: 048
  7. ADALAT [Concomitant]
     Dosage: UNK
     Route: 048
  8. URSO 250 [Concomitant]
     Dosage: UNK
     Route: 048

REACTIONS (2)
  - ABDOMINAL DISCOMFORT [None]
  - OESOPHAGEAL ULCER [None]
